FAERS Safety Report 25706646 (Version 2)
Quarter: 2025Q3

REPORT INFORMATION
  Report Type: Spontaneous
  Country: US (occurrence: US)
  Receive Date: 20250820
  Receipt Date: 20250822
  Transmission Date: 20251020
  Serious: Yes (Other)
  Sender: INSUD PHARMA
  Company Number: US-INSUD PHARMA-2508US06632

PATIENT

DRUGS (2)
  1. SLYND [Suspect]
     Active Substance: DROSPIRENONE
     Indication: Product used for unknown indication
     Route: 048
     Dates: start: 2023, end: 2024
  2. SLYND [Suspect]
     Active Substance: DROSPIRENONE
     Route: 048
     Dates: start: 202504

REACTIONS (3)
  - Ectopic pregnancy [Recovered/Resolved]
  - Drug ineffective [Unknown]
  - Amenorrhoea [Not Recovered/Not Resolved]

NARRATIVE: CASE EVENT DATE: 20241001
